FAERS Safety Report 19149476 (Version 1)
Quarter: 2021Q2

REPORT INFORMATION
  Report Type: Spontaneous
  Country: CA (occurrence: CA)
  Receive Date: 20210417
  Receipt Date: 20210417
  Transmission Date: 20210717
  Serious: Yes (Hospitalization, Other)
  Sender: FDA-Public Use
  Company Number: CA-B.I. PHARMACEUTICALS,INC./RIDGEFIELD-2021-BI-096196

PATIENT
  Age: 60 Year
  Sex: Female

DRUGS (17)
  1. NUCALA [Suspect]
     Active Substance: MEPOLIZUMAB
     Route: 042
  2. PREDNISONE. [Concomitant]
     Active Substance: PREDNISONE
     Indication: PRODUCT USED FOR UNKNOWN INDICATION
  3. SPIRIVA [Suspect]
     Active Substance: TIOTROPIUM BROMIDE MONOHYDRATE
     Indication: PRODUCT USED FOR UNKNOWN INDICATION
     Dosage: 1.0 DOSAGE FORMS 4 EVERY 1 DAYS
  4. NUCALA [Suspect]
     Active Substance: MEPOLIZUMAB
     Route: 042
  5. NUCALA [Suspect]
     Active Substance: MEPOLIZUMAB
     Indication: PRODUCT USED FOR UNKNOWN INDICATION
     Route: 042
  6. NUCALA [Suspect]
     Active Substance: MEPOLIZUMAB
     Route: 042
  7. SALBUTAMOL SULFATE [Suspect]
     Active Substance: ALBUTEROL SULFATE
     Indication: ASTHMA
     Dosage: 1.0 DOSAGE FORMS 2 EVERY 1 DAYS
  8. METFORMIN [Concomitant]
     Active Substance: METFORMIN HYDROCHLORIDE
     Indication: PRODUCT USED FOR UNKNOWN INDICATION
  9. ROSUVASTATIN CALCIUM. [Concomitant]
     Active Substance: ROSUVASTATIN CALCIUM
     Indication: PRODUCT USED FOR UNKNOWN INDICATION
  10. NUCALA [Suspect]
     Active Substance: MEPOLIZUMAB
     Indication: ASTHMA
     Route: 042
  11. TYLENOL [Concomitant]
     Active Substance: ACETAMINOPHEN
     Indication: PRODUCT USED FOR UNKNOWN INDICATION
  12. SPIRIVA [Suspect]
     Active Substance: TIOTROPIUM BROMIDE MONOHYDRATE
     Dosage: 1.0 DOSAGE FORMS 1EVERY 1 DAYS
  13. FLUTICASONE;SALMETEROL [Suspect]
     Active Substance: FLUTICASONE PROPIONATE\SALMETEROL XINAFOATE
     Indication: ASTHMA
     Dosage: 1.0 DOSAGE FORMS 2 EVERY 1 DAYS
  14. NUCALA [Suspect]
     Active Substance: MEPOLIZUMAB
     Route: 042
  15. ENALAPRIL [Concomitant]
     Active Substance: ENALAPRIL
     Indication: PRODUCT USED FOR UNKNOWN INDICATION
  16. BUDESONIDE;FORMOTEROL FUMARATE [Suspect]
     Active Substance: BUDESONIDE\FORMOTEROL FUMARATE
     Indication: PRODUCT USED FOR UNKNOWN INDICATION
     Route: 055
  17. SALBUTAMOL SULFATE [Suspect]
     Active Substance: ALBUTEROL SULFATE
     Indication: PRODUCT USED FOR UNKNOWN INDICATION
     Dosage: 1.0 DOSAGE FORMS 2 EVERY 1 DAYS

REACTIONS (18)
  - Cough [Recovered/Resolved]
  - Therapeutic product effect incomplete [Recovered/Resolved]
  - Dizziness [Recovered/Resolved]
  - Lymphoproliferative disorder [Recovered/Resolved]
  - Productive cough [Recovered/Resolved]
  - Pulmonary mass [Recovered/Resolved]
  - Asthma [Recovered/Resolved]
  - Blood count abnormal [Recovered/Resolved]
  - Loss of personal independence in daily activities [Recovered/Resolved]
  - Lymphocytosis [Recovered/Resolved]
  - Migraine [Recovered/Resolved]
  - Pneumonia [Recovered/Resolved]
  - Bronchiectasis [Recovered/Resolved]
  - Dyspnoea [Recovered/Resolved]
  - Wheezing [Recovered/Resolved]
  - Chronic lymphocytic leukaemia [Recovered/Resolved]
  - Obstructive airways disorder [Recovered/Resolved]
  - Sleep disorder due to a general medical condition [Recovered/Resolved]
